FAERS Safety Report 19657754 (Version 2)
Quarter: 2021Q4

REPORT INFORMATION
  Report Type: Spontaneous
  Country: JP (occurrence: JP)
  Receive Date: 20210804
  Receipt Date: 20211026
  Transmission Date: 20220304
  Serious: Yes (Death, Other)
  Sender: FDA-Public Use
  Company Number: JP-CELGENE-JPN-20210800020

PATIENT
  Sex: Male
  Weight: 60.9 kg

DRUGS (49)
  1. REVLIMID [Suspect]
     Active Substance: LENALIDOMIDE
     Indication: Follicular lymphoma
     Dosage: 20 MILLIGRAM
     Route: 048
     Dates: start: 20210224, end: 20210309
  2. RITUXIMAB [Concomitant]
     Active Substance: RITUXIMAB
     Indication: Follicular lymphoma
     Dosage: UNKNOWN
     Route: 065
  3. RITUXIMAB [Concomitant]
     Active Substance: RITUXIMAB
     Route: 065
     Dates: start: 20210224, end: 20210303
  4. AZELNIDIPINE [Concomitant]
     Active Substance: AZELNIDIPINE
     Indication: Hypertension
     Dosage: UNKNOWN
     Route: 048
     Dates: start: 20210224, end: 20210322
  5. MAGNESIUM OXIDE [Concomitant]
     Active Substance: MAGNESIUM OXIDE
     Indication: Constipation
     Dosage: UNKNOWN
     Route: 048
     Dates: start: 20210224, end: 20210322
  6. DOMPERIDONE [Concomitant]
     Active Substance: DOMPERIDONE
     Indication: Nausea
     Dosage: UNKNOWN
     Route: 048
     Dates: start: 20210224, end: 20210322
  7. ASPIRIN [Concomitant]
     Active Substance: ASPIRIN
     Indication: Prophylaxis
     Dosage: UNKNOWN
     Route: 048
     Dates: start: 20210224, end: 20210319
  8. ALFACALCIDOL [Concomitant]
     Active Substance: ALFACALCIDOL
     Indication: Osteoporosis
     Dosage: UNKNOWN
     Route: 048
     Dates: start: 20210224, end: 20210322
  9. TORSEMIDE [Concomitant]
     Active Substance: TORSEMIDE
     Indication: Follicular lymphoma
     Dosage: UNKNOWN
     Route: 048
     Dates: start: 20210224, end: 20210323
  10. TORSEMIDE [Concomitant]
     Active Substance: TORSEMIDE
     Indication: Pleural effusion
  11. TORSEMIDE [Concomitant]
     Active Substance: TORSEMIDE
     Indication: Oedema
  12. URSODIOL [Concomitant]
     Active Substance: URSODIOL
     Indication: Follicular lymphoma
     Dosage: UNKNOWN
     Route: 048
     Dates: start: 20210224, end: 20210322
  13. URSODIOL [Concomitant]
     Active Substance: URSODIOL
     Indication: Liver disorder
  14. FOLIC ACID [Concomitant]
     Active Substance: FOLIC ACID
     Indication: Follicular lymphoma
     Dosage: UNKNOWN
     Route: 048
     Dates: start: 20210302, end: 20210322
  15. FOLIC ACID [Concomitant]
     Active Substance: FOLIC ACID
     Indication: Blood folate decreased
  16. FENTANYL [Concomitant]
     Active Substance: FENTANYL
     Indication: Follicular lymphoma
     Dosage: UNKNOWN
     Route: 061
     Dates: start: 20210415, end: 20210504
  17. FUROSEMIDE [Concomitant]
     Active Substance: FUROSEMIDE
     Indication: Follicular lymphoma
     Dosage: UNKNOWN
     Route: 041
     Dates: start: 20210224, end: 20210225
  18. FUROSEMIDE [Concomitant]
     Active Substance: FUROSEMIDE
     Indication: Pleural effusion
     Dosage: UNKNOWN
     Route: 041
     Dates: start: 20210318, end: 20210504
  19. FUROSEMIDE [Concomitant]
     Active Substance: FUROSEMIDE
     Indication: Oedema
  20. FLURBIPROFEN AXETIL [Concomitant]
     Active Substance: FLURBIPROFEN AXETIL
     Indication: Tumour flare
     Dosage: UNKNOWN
     Route: 041
     Dates: start: 20210309, end: 20210315
  21. Kenketsu albumin [Concomitant]
     Indication: Follicular lymphoma
     Dosage: UNKNOWN
     Route: 041
     Dates: start: 20210407, end: 20210408
  22. Kenketsu albumin [Concomitant]
     Indication: Pleural effusion
  23. Kenketsu albumin [Concomitant]
     Indication: Oedema
  24. CARBAZOCHROME [Concomitant]
     Active Substance: CARBAZOCHROME
     Indication: Follicular lymphoma
     Dosage: UNKNOWN
     Route: 041
     Dates: start: 20210414, end: 20210504
  25. CARBAZOCHROME [Concomitant]
     Active Substance: CARBAZOCHROME
     Indication: Haemorrhagic diathesis
  26. TRANEXAMIC ACID [Concomitant]
     Active Substance: TRANEXAMIC ACID
     Indication: Follicular lymphoma
     Dosage: UNKNOWN
     Route: 041
     Dates: start: 20210414, end: 20210504
  27. TRANEXAMIC ACID [Concomitant]
     Active Substance: TRANEXAMIC ACID
     Indication: Haemorrhagic diathesis
  28. MAXIPIME [Concomitant]
     Active Substance: CEFEPIME HYDROCHLORIDE
     Indication: Bacterial infection
     Dosage: UNKNOWN
     Route: 041
     Dates: start: 20210224, end: 20210226
  29. MAXIPIME [Concomitant]
     Active Substance: CEFEPIME HYDROCHLORIDE
     Dosage: UNKNOWN
     Route: 041
     Dates: start: 20210409, end: 20210416
  30. LEVOFLOXACIN [Concomitant]
     Active Substance: LEVOFLOXACIN
     Indication: Bacterial infection
     Dosage: UNKNOWN
     Route: 041
     Dates: start: 20210227, end: 20210311
  31. ISEPAMICIN [Concomitant]
     Active Substance: ISEPAMICIN
     Indication: Bacterial infection
     Dosage: UNKNOWN
     Route: 041
     Dates: start: 20210305, end: 20210307
  32. MEROPENEM [Concomitant]
     Active Substance: MEROPENEM
     Indication: Neutropenia
     Dosage: UNKNOWN
     Route: 041
     Dates: start: 20210308, end: 20210315
  33. MEROPENEM [Concomitant]
     Active Substance: MEROPENEM
     Indication: Bacterial infection
     Dosage: UNKNOWN
     Route: 041
     Dates: start: 20210401, end: 20210408
  34. MEROPENEM [Concomitant]
     Active Substance: MEROPENEM
     Indication: Febrile neutropenia
  35. VFEND [Concomitant]
     Active Substance: VORICONAZOLE
     Indication: Neutropenia
     Dosage: UNKNOWN
     Route: 041
     Dates: start: 20210310, end: 20210315
  36. VFEND [Concomitant]
     Active Substance: VORICONAZOLE
     Indication: Systemic mycosis
  37. VFEND [Concomitant]
     Active Substance: VORICONAZOLE
     Indication: Febrile neutropenia
  38. FILGRASTIM [Concomitant]
     Active Substance: FILGRASTIM
     Indication: Neutropenia
     Dosage: UNKNOWN
     Route: 058
     Dates: start: 20210312, end: 20210314
  39. TEICOPLANIN [Concomitant]
     Active Substance: TEICOPLANIN
     Indication: Neutropenia
     Dosage: UNKNOWN
     Route: 041
     Dates: start: 20210312, end: 20210318
  40. TEICOPLANIN [Concomitant]
     Active Substance: TEICOPLANIN
     Indication: Bacterial infection
  41. TEICOPLANIN [Concomitant]
     Active Substance: TEICOPLANIN
     Indication: Febrile neutropenia
  42. DORIPENEM MONOHYDRATE [Concomitant]
     Active Substance: DORIPENEM MONOHYDRATE
     Indication: Neutropenia
     Dosage: UNKNOWN
     Route: 041
     Dates: start: 20210316, end: 20210323
  43. DORIPENEM MONOHYDRATE [Concomitant]
     Active Substance: DORIPENEM MONOHYDRATE
     Indication: Bacterial infection
  44. DORIPENEM MONOHYDRATE [Concomitant]
     Active Substance: DORIPENEM MONOHYDRATE
     Indication: Febrile neutropenia
  45. BIAPENEM [Concomitant]
     Active Substance: BIAPENEM
     Indication: Bacterial infection
     Dosage: UNKNOWN
     Route: 041
     Dates: start: 20210324, end: 20210331
  46. VANCOMYCIN [Concomitant]
     Active Substance: VANCOMYCIN
     Indication: Bacterial infection
     Dosage: UNKNOWN
     Route: 041
     Dates: start: 20210320, end: 20210327
  47. CEFOZOPRAN HYDROCHLORIDE [Concomitant]
     Active Substance: CEFOZOPRAN HYDROCHLORIDE
     Indication: Bacterial infection
     Dosage: UNKNOWN
     Route: 041
     Dates: start: 20210417, end: 20210424
  48. PIPERACILLIN SODIUM\TAZOBACTAM SODIUM [Concomitant]
     Active Substance: PIPERACILLIN SODIUM\TAZOBACTAM SODIUM
     Indication: Bacterial infection
     Dosage: UNKNOWN
     Route: 041
     Dates: start: 20210425, end: 20210502
  49. CEFMETAZOLE [Concomitant]
     Active Substance: CEFMETAZOLE
     Indication: Bacterial infection
     Dosage: UNKNOWN
     Route: 041
     Dates: start: 20210503, end: 20210504

REACTIONS (9)
  - Myelosuppression [Unknown]
  - Follicular lymphoma [Fatal]
  - Gastric ulcer [Unknown]
  - Haemorrhagic diathesis [Unknown]
  - Systemic mycosis [Unknown]
  - Blood folate decreased [Unknown]
  - Bacterial infection [Unknown]
  - Bacterial infection [Unknown]
  - Hypokalaemia [Unknown]

NARRATIVE: CASE EVENT DATE: 20210101
